FAERS Safety Report 9448188 (Version 1)
Quarter: 2013Q3

REPORT INFORMATION
  Report Type: Spontaneous
  Country: CN (occurrence: None)
  Receive Date: 20130806
  Receipt Date: 20130806
  Transmission Date: 20140515
  Serious: Yes (Hospitalization)
  Sender: FDA-Public Use
  Company Number: 2013P1015285

PATIENT
  Age: 43 Year
  Sex: Male

DRUGS (2)
  1. ALBENDAZOLE [Suspect]
     Dosage: 2 TABLETS
     Route: 048
     Dates: start: 2013, end: 2013
  2. FLUTICASONE PROPIONATW +SALMETEROL XINAFOATE 50 MCG/250MCG [Suspect]
     Indication: ASTHMA
     Dosage: 1 PUFF
     Route: 055

REACTIONS (7)
  - Drug ineffective [None]
  - Dizziness [None]
  - Vision blurred [None]
  - Hypoaesthesia [None]
  - Loss of consciousness [None]
  - Blood viscosity increased [None]
  - Brain stem syndrome [None]
